FAERS Safety Report 23651769 (Version 1)
Quarter: 2024Q1

REPORT INFORMATION
  Report Type: Spontaneous
  Country: US (occurrence: US)
  Receive Date: 20240320
  Receipt Date: 20240320
  Transmission Date: 20240410
  Serious: Yes (Hospitalization, Other)
  Sender: FDA-Public Use
  Company Number: US-SUN PHARMACEUTICAL INDUSTRIES LTD-2024R1-436951

PATIENT
  Age: 63 Year
  Sex: Male

DRUGS (2)
  1. EPOPROSTENOL [Suspect]
     Active Substance: EPOPROSTENOL
     Indication: Vasodilatation
     Dosage: UNK
  2. NITRIC OXIDE [Suspect]
     Active Substance: NITRIC OXIDE
     Indication: Hypoxia
     Dosage: UNK (20 PARTS PER MILLION)

REACTIONS (3)
  - Disease recurrence [Unknown]
  - Renal disorder [Recovering/Resolving]
  - Methaemoglobinaemia [Unknown]
